FAERS Safety Report 6266827-9 (Version None)
Quarter: 2009Q3

REPORT INFORMATION
  Report Type: 
  Country: None (occurrence: None)
  Receive Date: 20090714
  Receipt Date: 20090706
  Transmission Date: 20100115
  Serious: Yes (Other)
  Sender: FDA-Public Use
  Company Number: US-JNJFOC-20090702047

PATIENT
  Age: 87 Year
  Sex: Female
  Weight: 88.45 kg

DRUGS (11)
  1. IMODIUM MULTI-SYMPTOM RELIEF [Suspect]
     Route: 048
  2. IMODIUM MULTI-SYMPTOM RELIEF [Suspect]
     Indication: DIARRHOEA
     Dosage: 1/2 CAPLET A DAY FOR ABOUT 2 MONTHS IN THE MORNING
     Route: 048
  3. SIMVASTATIN [Concomitant]
     Indication: BLOOD CHOLESTEROL INCREASED
     Dosage: FOR YEARS
  4. AVALIDE [Concomitant]
     Indication: HYPERTENSION
     Dosage: FOR YEARS
  5. CELEBREX [Concomitant]
     Indication: ARTHRITIS
  6. FOSAMAX [Concomitant]
     Indication: OSTEOPOROSIS
     Dosage: FOR YEARS
  7. MULTI-VITAMINS [Concomitant]
     Indication: VITAMIN SUPPLEMENTATION
     Dosage: FOR YEARS
  8. VITAMIN B-12 [Concomitant]
     Indication: VITAMIN SUPPLEMENTATION
     Dosage: FOR YEARS
  9. VITAMIN B1 TAB [Concomitant]
     Indication: VITAMIN SUPPLEMENTATION
  10. CALCIUM [Concomitant]
     Indication: NUTRITIONAL SUPPORT
  11. CLARINEX [Concomitant]
     Indication: MULTIPLE ALLERGIES

REACTIONS (2)
  - STOMATITIS [None]
  - WRONG TECHNIQUE IN DRUG USAGE PROCESS [None]
